FAERS Safety Report 15105998 (Version 1)
Quarter: 2018Q3

REPORT INFORMATION
  Report Type: Other
  Country: CA (occurrence: CA)
  Receive Date: 20180704
  Receipt Date: 20180704
  Transmission Date: 20181010
  Serious: Yes (Congenital Anomaly, Other)
  Sender: FDA-Public Use
  Company Number: CA-APOTEX-2018AP016293

PATIENT
  Age: 15 Year
  Sex: Female

DRUGS (1)
  1. ONDANSETRON [Suspect]
     Active Substance: ONDANSETRON
     Indication: FOETAL EXPOSURE DURING PREGNANCY
     Dosage: UNK
     Route: 064

REACTIONS (7)
  - Ankyloglossia congenital [Unknown]
  - Body height below normal [Unknown]
  - Epiphyses delayed fusion [Unknown]
  - Failure to thrive [Unknown]
  - Congenital anomaly [Unknown]
  - Growth retardation [Unknown]
  - Foetal exposure during pregnancy [Unknown]
